FAERS Safety Report 8378781-4 (Version None)
Quarter: 2012Q2

REPORT INFORMATION
  Report Type: 
  Country: None (occurrence: None)
  Receive Date: 20120523
  Receipt Date: 20120510
  Transmission Date: 20120825
  Serious: Yes (Other)
  Sender: FDA-Public Use
  Company Number: TW-AMGEN-TWNSP2012030929

PATIENT
  Age: 55 Year
  Sex: Male

DRUGS (14)
  1. ENBREL [Suspect]
     Indication: PSORIATIC ARTHROPATHY
     Dosage: 25 MG, 2X/WEEK
     Route: 058
     Dates: start: 20120201, end: 20120401
  2. ENBREL [Suspect]
     Indication: PSORIASIS
  3. NEORAL [Concomitant]
     Dosage: 200 MG, PER DAY
     Dates: start: 20110701, end: 20110826
  4. CELEBREX [Concomitant]
     Dosage: 400 MG, PER DAY
     Dates: start: 20120321, end: 20120403
  5. ARAVA [Concomitant]
     Dosage: 20 MG, PER DAY
     Dates: start: 20111209, end: 20120131
  6. ACITRETIN [Concomitant]
     Dosage: 25 MG, PER DAY
     Dates: start: 20110513, end: 20110630
  7. METHOTREXATE [Concomitant]
     Dosage: 15 MG, PER WEEK
     Dates: start: 20110701, end: 20120131
  8. NEORAL [Concomitant]
     Dosage: 150 MG, PER DAY
     Dates: start: 20111125, end: 20120131
  9. METHOTREXATE [Concomitant]
     Dosage: 15 MG, PER WEEK
     Dates: start: 20110513, end: 20110630
  10. NEORAL [Concomitant]
     Dosage: 125 MG, PER DAY
     Dates: start: 20101110, end: 20101123
  11. METHOTREXATE [Concomitant]
     Dosage: 15 MG, PER WEEK
     Dates: start: 20120201, end: 20120214
  12. NEORAL [Concomitant]
     Dosage: 150 MG, PER DAY
     Dates: start: 20120201, end: 20120214
  13. CELEBREX [Concomitant]
     Dosage: 200 MG, PER DAY
     Dates: start: 20111209, end: 20120131
  14. CELEBREX [Concomitant]
     Dosage: 200 MG, PER DAY
     Dates: start: 20120201, end: 20120320

REACTIONS (1)
  - METASTASES TO BONE [None]
